FAERS Safety Report 6213159-0 (Version None)
Quarter: 2009Q2

REPORT INFORMATION
  Report Type: 
  Country: None (occurrence: None)
  Receive Date: 20090528
  Receipt Date: 20090219
  Transmission Date: 20091009
  Serious: No
  Sender: FDA-Public Use
  Company Number: MC200900078

PATIENT

DRUGS (4)
  1. CLEVIPREX [Suspect]
     Indication: BLOOD PRESSURE MANAGEMENT
     Dosage: 5 MG, HR, INTRAVENOUS; 16-20 MG/HR, INTRAVENOUS; 5 MG, HR, INTRAVENOUS; 5 MG, HR, INTRAVENOUS
     Route: 042
     Dates: start: 20090218, end: 20090219
  2. CLEVIPREX [Suspect]
     Indication: BLOOD PRESSURE MANAGEMENT
     Dosage: 5 MG, HR, INTRAVENOUS; 16-20 MG/HR, INTRAVENOUS; 5 MG, HR, INTRAVENOUS; 5 MG, HR, INTRAVENOUS
     Route: 042
     Dates: start: 20090219, end: 20090219
  3. CLEVIPREX [Suspect]
     Indication: BLOOD PRESSURE MANAGEMENT
     Dosage: 5 MG, HR, INTRAVENOUS; 16-20 MG/HR, INTRAVENOUS; 5 MG, HR, INTRAVENOUS; 5 MG, HR, INTRAVENOUS
     Route: 042
     Dates: start: 20090219, end: 20090219
  4. CLEVIPREX [Suspect]
     Indication: BLOOD PRESSURE MANAGEMENT
     Dosage: 5 MG, HR, INTRAVENOUS; 16-20 MG/HR, INTRAVENOUS; 5 MG, HR, INTRAVENOUS; 5 MG, HR, INTRAVENOUS
     Route: 042
     Dates: start: 20090219, end: 20090219

REACTIONS (1)
  - BLOOD PRESSURE INADEQUATELY CONTROLLED [None]
